FAERS Safety Report 8769562 (Version 2)
Quarter: 2013Q1

REPORT INFORMATION
  Report Type: Spontaneous
  Country: US (occurrence: US)
  Receive Date: 20120905
  Receipt Date: 20130111
  Transmission Date: 20140127
  Serious: Yes (Hospitalization)
  Sender: FDA-Public Use
  Company Number: US-BAYER-2012-090688

PATIENT
  Age: 24 Year
  Sex: Female

DRUGS (3)
  1. YASMIN [Suspect]
  2. WELLBUTRIN [Concomitant]
     Indication: ANXIETY DISORDER
     Dosage: UNK
     Dates: start: 2007, end: 2008
  3. CLONAZEPAM [Concomitant]
     Dosage: UNK
     Dates: start: 2007, end: 2008

REACTIONS (1)
  - Pulmonary embolism [Recovered/Resolved]
